FAERS Safety Report 6134860-3 (Version None)
Quarter: 2009Q1

REPORT INFORMATION
  Report Type: 
  Country: None (occurrence: None)
  Receive Date: 20090327
  Receipt Date: 20090324
  Transmission Date: 20090719
  Serious: Yes (Life-Threatening)
  Sender: FDA-Public Use
  Company Number: JP-AVENTIS-200910626JP

PATIENT
  Age: 68 Year
  Sex: Female
  Weight: 48 kg

DRUGS (5)
  1. TAXOTERE [Suspect]
     Route: 041
     Dates: start: 20090223, end: 20090223
  2. KYTRIL                             /01178101/ [Concomitant]
     Dates: start: 20090223, end: 20090223
  3. DECADRON [Concomitant]
     Dates: start: 20090223, end: 20090223
  4. ADRIACIN [Concomitant]
     Dates: start: 20081121, end: 20090130
  5. CYCLOPHOSPHAMIDE [Concomitant]
     Dates: start: 20081121, end: 20090130

REACTIONS (3)
  - DYSPNOEA [None]
  - FLUSHING [None]
  - SHOCK [None]
